FAERS Safety Report 4691947-X (Version None)
Quarter: 2005Q2

REPORT INFORMATION
  Report Type: 
  Country: None (occurrence: None)
  Receive Date: 20050616
  Receipt Date: 20050616
  Transmission Date: 20051028
  Serious: Yes (Death, Life-Threatening, Hospitalization)
  Sender: FDA-Public Use
  Company Number: None

PATIENT
  Age: 14 Year
  Sex: Female
  Weight: 55 kg

DRUGS (4)
  1. PHENYTOIN [Suspect]
     Indication: CONVULSION
     Dosage: 300 MG PO Q12
     Route: 048
     Dates: start: 20050205, end: 20050213
  2. CEPHALEXIN [Suspect]
     Indication: INFECTION
     Dosage: 500 MG PO QID
     Route: 048
     Dates: start: 20050211, end: 20050213
  3. LOVENOX [Concomitant]
  4. FOSPHENYTOIN SODIUM [Concomitant]

REACTIONS (21)
  - ACUTE RESPIRATORY DISTRESS SYNDROME [None]
  - ANAEMIA [None]
  - BONE MARROW DISORDER [None]
  - COAGULOPATHY [None]
  - COMA [None]
  - CONVULSION [None]
  - DRUG HYPERSENSITIVITY [None]
  - ENCEPHALOPATHY [None]
  - GENERAL PHYSICAL HEALTH DETERIORATION [None]
  - GENERALISED OEDEMA [None]
  - HAEMODYNAMIC INSTABILITY [None]
  - HYPOTENSION [None]
  - MULTI-ORGAN FAILURE [None]
  - NECROSIS [None]
  - NEUTROPENIA [None]
  - PYREXIA [None]
  - RASH [None]
  - RENAL FAILURE [None]
  - TACHYCARDIA [None]
  - THROMBOCYTOPENIA [None]
  - TOXIC SHOCK SYNDROME [None]
